FAERS Safety Report 5984035-3 (Version None)
Quarter: 2008Q4

REPORT INFORMATION
  Report Type: 
  Country: None (occurrence: None)
  Receive Date: 20081205
  Receipt Date: 20081205
  Transmission Date: 20090506
  Serious: No
  Sender: FDA-Public Use
  Company Number: None

PATIENT
  Age: 50 Year
  Sex: Female
  Weight: 52.1637 kg

DRUGS (1)
  1. AMPHETAMINE SALT, 10MG TABLET BARR LABS [Suspect]
     Indication: CHRONIC FATIGUE SYNDROME
     Dosage: 10MG ONCE PER DAY ORAL  DAILY FOR SEVERAL YEARS
     Route: 048

REACTIONS (4)
  - DRUG EFFECT DECREASED [None]
  - LABORATORY TEST ABNORMAL [None]
  - PRODUCT QUALITY ISSUE [None]
  - THERAPEUTIC RESPONSE UNEXPECTED WITH DRUG SUBSTITUTION [None]
